FAERS Safety Report 12792718 (Version 1)
Quarter: 2016Q3

REPORT INFORMATION
  Report Type: Spontaneous
  Country: US (occurrence: US)
  Receive Date: 20160929
  Receipt Date: 20160929
  Transmission Date: 20161109
  Serious: No
  Sender: FDA-Public Use
  Company Number: None

PATIENT
  Sex: Male

DRUGS (1)
  1. TRIHEXPHENIDYL 2MG ACTAVIS [Suspect]
     Active Substance: TRIHEXYPHENIDYL HYDROCHLORIDE
     Route: 048
     Dates: start: 20160309, end: 20160923

REACTIONS (4)
  - Nervousness [None]
  - Weight decreased [None]
  - Agitation [None]
  - Tremor [None]
